FAERS Safety Report 19798830 (Version 2)
Quarter: 2022Q2

REPORT INFORMATION
  Report Type: Spontaneous
  Country: US (occurrence: US)
  Receive Date: 20210907
  Receipt Date: 20220401
  Transmission Date: 20220721
  Serious: No
  Sender: FDA-Public Use
  Company Number: US-PFIZER INC-2021714839

PATIENT
  Age: 59 Year
  Sex: Female
  Weight: 60.771 kg

DRUGS (5)
  1. IBRANCE [Suspect]
     Active Substance: PALBOCICLIB
     Indication: Breast cancer female
     Dosage: 125 MG
  2. IBRANCE [Suspect]
     Active Substance: PALBOCICLIB
     Dosage: 100 MG CYCLIC (1 DAILY FOR 21 DAYS)
     Route: 048
     Dates: start: 202104
  3. IBRANCE [Suspect]
     Active Substance: PALBOCICLIB
     Dosage: 100 MG CYCLIC (21 OUT OF 28 DAYS)
     Route: 048
  4. FASLODEX [Concomitant]
     Active Substance: FULVESTRANT
     Dosage: 250 MG/5 ML SYRINGE
  5. Vtiamin D-400 [Concomitant]
     Dosage: VTIAMIN D-400 10 MCG TABLET

REACTIONS (4)
  - Abdominal pain upper [Unknown]
  - White blood cell count decreased [Unknown]
  - Fatigue [Unknown]
  - Faeces hard [Unknown]

NARRATIVE: CASE EVENT DATE: 20210101
